FAERS Safety Report 26113366 (Version 2)
Quarter: 2025Q4

REPORT INFORMATION
  Report Type: Spontaneous
  Country: US (occurrence: US)
  Receive Date: 20251202
  Receipt Date: 20251216
  Transmission Date: 20260118
  Serious: No
  Sender: ROCHE
  Company Number: US-ROCHE-10000445687

PATIENT

DRUGS (1)
  1. COTELLIC [Suspect]
     Active Substance: COBIMETINIB FUMARATE
     Indication: Hepatocellular carcinoma
     Dosage: 40 MG ONCE A DAY (2 TABLETS ONCE A DAY FOR 21 DAYS OUT OF A 28 DAY CYCLE)

REACTIONS (2)
  - Off label use [Unknown]
  - No adverse event [Unknown]
